FAERS Safety Report 18022620 (Version 2)
Quarter: 2020Q3

REPORT INFORMATION
  Report Type: Spontaneous
  Country: FR (occurrence: FR)
  Receive Date: 20200714
  Receipt Date: 20200804
  Transmission Date: 20201103
  Serious: Yes (Other)
  Sender: FDA-Public Use
  Company Number: FR-MYLANLABS-2020M1062895

PATIENT
  Age: 63 Year
  Sex: Female

DRUGS (3)
  1. FLODIL                             /00641902/ [Suspect]
     Active Substance: BUFLOMEDIL HYDROCHLORIDE
     Dosage: 5 MILLIGRAM, QD
     Route: 048
  2. METOPROLOL. [Suspect]
     Active Substance: METOPROLOL
     Indication: HYPERTENSION
     Dosage: UNK
     Dates: start: 19970318, end: 2017
  3. FLODIL                             /00641902/ [Suspect]
     Active Substance: BUFLOMEDIL HYDROCHLORIDE
     Indication: HYPERTENSION
     Dosage: 5 MILLIGRAM, BID
     Route: 048
     Dates: start: 19970318

REACTIONS (4)
  - Palpitations [Unknown]
  - Hypotension [Unknown]
  - Tachycardia [Unknown]
  - Atrioventricular block [Not Recovered/Not Resolved]

NARRATIVE: CASE EVENT DATE: 2016
